FAERS Safety Report 5144369-1 (Version None)
Quarter: 2006Q4

REPORT INFORMATION
  Report Type: 
  Country: None (occurrence: None)
  Receive Date: 20061030
  Receipt Date: 20061016
  Transmission Date: 20070319
  Serious: Yes (Other)
  Sender: FDA-Public Use
  Company Number: 2006127044

PATIENT
  Sex: Male
  Weight: 90.7194 kg

DRUGS (9)
  1. GEODON [Suspect]
     Indication: PSYCHOTIC DISORDER
     Dates: start: 20060809
  2. DEPAKOTE [Concomitant]
  3. HALDOL [Concomitant]
  4. ATIVAN [Concomitant]
  5. GLUCOTROL [Concomitant]
  6. METFORMIN [Concomitant]
  7. ZOCOR [Concomitant]
  8. LISINOPRIL [Concomitant]
  9. ACETYLSALICYLIC ACID SRT [Concomitant]

REACTIONS (3)
  - EYE PAIN [None]
  - EYE SWELLING [None]
  - OCULAR HYPERAEMIA [None]
